FAERS Safety Report 13885515 (Version 1)
Quarter: 2017Q3

REPORT INFORMATION
  Report Type: Spontaneous
  Country: US (occurrence: US)
  Receive Date: 20170821
  Receipt Date: 20170821
  Transmission Date: 20171127
  Serious: No
  Sender: FDA-Public Use
  Company Number: US-PFIZER INC-2017356628

PATIENT
  Sex: Male

DRUGS (3)
  1. XELJANZ XR [Suspect]
     Active Substance: TOFACITINIB CITRATE
     Dosage: 11 MG, UNK
  2. CELEBREX [Suspect]
     Active Substance: CELECOXIB
     Dosage: UNK
  3. MEDROL [Suspect]
     Active Substance: METHYLPREDNISOLONE
     Dosage: 4 MG, UNK

REACTIONS (19)
  - Alopecia [Unknown]
  - Hypertension [Unknown]
  - Weight increased [Unknown]
  - Laboratory test abnormal [Unknown]
  - Paraesthesia [Unknown]
  - Myalgia [Unknown]
  - Muscle spasms [Unknown]
  - Fear of injection [Unknown]
  - Musculoskeletal stiffness [Unknown]
  - Dry eye [Unknown]
  - Joint range of motion decreased [Unknown]
  - Arthralgia [Unknown]
  - Pain [Unknown]
  - Fatigue [Unknown]
  - Obesity [Unknown]
  - Swelling [Unknown]
  - Constipation [Unknown]
  - Insomnia [Unknown]
  - Synovitis [Unknown]
